FAERS Safety Report 20490684 (Version 4)
Quarter: 2022Q2

REPORT INFORMATION
  Report Type: Report from Study
  Country: US (occurrence: None)
  Receive Date: 20220218
  Receipt Date: 20220420
  Transmission Date: 20220720
  Serious: Yes (Hospitalization)
  Sender: FDA-Public Use
  Company Number: US-Eisai Medical Research-EC-2022-108807

PATIENT
  Age: 64 Year
  Sex: Male

DRUGS (4)
  1. LENVIMA [Suspect]
     Active Substance: LENVATINIB
     Indication: Thyroid cancer
     Route: 048
     Dates: start: 202111, end: 2021
  2. LENVIMA [Suspect]
     Active Substance: LENVATINIB
     Dosage: MONDAY, WEDNESDAY AND FRIDAY
     Route: 048
     Dates: start: 20211227
  3. LENVIMA [Suspect]
     Active Substance: LENVATINIB
     Dosage: 5 TIMES A WEEK
     Route: 048
     Dates: start: 20220214, end: 202202
  4. LENVIMA [Suspect]
     Active Substance: LENVATINIB
     Dosage: MONDAY, WEDNESDAY AND FRIDAY
     Route: 048
     Dates: start: 202202, end: 202202

REACTIONS (12)
  - Blood calcium increased [Unknown]
  - Dehydration [Recovered/Resolved]
  - Renal impairment [Recovering/Resolving]
  - Nephrolithiasis [Not Recovered/Not Resolved]
  - Hallucination [Recovering/Resolving]
  - Disturbance in attention [Recovering/Resolving]
  - Somnolence [Recovering/Resolving]
  - Confusional state [Recovering/Resolving]
  - Mental fatigue [Recovering/Resolving]
  - Abdominal discomfort [Unknown]
  - Cough [Unknown]
  - Upper-airway cough syndrome [Unknown]

NARRATIVE: CASE EVENT DATE: 20210101
